FAERS Safety Report 7325956-9 (Version None)
Quarter: 2011Q1

REPORT INFORMATION
  Report Type: 
  Country: None (occurrence: None)
  Receive Date: 20110302
  Receipt Date: 20110222
  Transmission Date: 20110831
  Serious: Yes (Other)
  Sender: FDA-Public Use
  Company Number: US-JNJFOC-20110208680

PATIENT
  Sex: Female

DRUGS (3)
  1. TYLENOL (CAPLET) [Suspect]
     Indication: ANALGESIC THERAPY
     Route: 048
  2. DIOVAN [Concomitant]
     Indication: HYPERTENSION
     Route: 065
  3. TYLENOL (CAPLET) [Suspect]
     Route: 048

REACTIONS (2)
  - PRODUCT QUALITY ISSUE [None]
  - SWOLLEN TONGUE [None]
